FAERS Safety Report 17394862 (Version 2)
Quarter: 2020Q3

REPORT INFORMATION
  Report Type: Spontaneous
  Country: CH (occurrence: CH)
  Receive Date: 20200210
  Receipt Date: 20200715
  Transmission Date: 20201102
  Serious: Yes (Death, Hospitalization)
  Sender: FDA-Public Use
  Company Number: CH-ROCHE-2538738

PATIENT
  Age: 47 Year
  Sex: Male

DRUGS (2)
  1. RIBOMUSTIN [Suspect]
     Active Substance: BENDAMUSTINE HYDROCHLORIDE
     Indication: B-CELL LYMPHOMA
     Dosage: 5 CYCLES COMPLETED IN TOTAL
     Route: 041
     Dates: start: 20171228, end: 20180426
  2. GAZYVARO [Suspect]
     Active Substance: OBINUTUZUMAB
     Indication: B-CELL LYMPHOMA
     Dosage: 5 CYCLES COMPLETED IN TOTAL
     Route: 042
     Dates: start: 20171228, end: 20180426

REACTIONS (10)
  - Panencephalitis [Fatal]
  - Brain injury [Fatal]
  - Myelosuppression [Not Recovered/Not Resolved]
  - Nervous system disorder [Fatal]
  - Optic neuritis [Not Recovered/Not Resolved]
  - Asthenia [Fatal]
  - Visual field defect [Fatal]
  - Metastases to meninges [Fatal]
  - Ataxia [Fatal]
  - Dysarthria [Fatal]

NARRATIVE: CASE EVENT DATE: 201804
